FAERS Safety Report 18436138 (Version 5)
Quarter: 2021Q4

REPORT INFORMATION
  Report Type: Spontaneous
  Country: None (occurrence: US)
  Receive Date: 20201028
  Receipt Date: 20211129
  Transmission Date: 20220303
  Serious: No
  Sender: FDA-Public Use
  Company Number: US-AKCEA THERAPEUTICS-2020IS001374

PATIENT
  Age: 68 Year
  Sex: Male

DRUGS (2)
  1. TEGSEDI [Suspect]
     Active Substance: INOTERSEN SODIUM
     Indication: Hereditary neuropathic amyloidosis
     Route: 058
     Dates: start: 20190801
  2. DEVICE [Suspect]
     Active Substance: DEVICE

REACTIONS (11)
  - Platelet count decreased [Not Recovered/Not Resolved]
  - Urine protein/creatinine ratio increased [Unknown]
  - Glomerular filtration rate decreased [Not Recovered/Not Resolved]
  - Blood creatinine increased [Not Recovered/Not Resolved]
  - White blood cells urine positive [Not Recovered/Not Resolved]
  - Bacterial test positive [Not Recovered/Not Resolved]
  - Urinary casts [Unknown]
  - Protein urine present [Unknown]
  - Urine leukocyte esterase positive [Unknown]
  - Creatinine urine abnormal [Unknown]
  - Urine ketone body present [Unknown]
